FAERS Safety Report 20113012 (Version 1)
Quarter: 2021Q4

REPORT INFORMATION
  Report Type: Spontaneous
  Country: US (occurrence: None)
  Receive Date: 20211124
  Receipt Date: 20211124
  Transmission Date: 20220303
  Serious: Yes (Other)
  Sender: FDA-Public Use
  Company Number: None

PATIENT
  Age: 73 Year
  Sex: Female
  Weight: 70.2 kg

DRUGS (15)
  1. HIZENTRA [Suspect]
     Active Substance: HUMAN IMMUNOGLOBULIN G
     Indication: Immunodeficiency common variable
     Dosage: OTHER FREQUENCY : EVERY OTHER WEEK;?
     Route: 058
  2. Acetaminophen (325 mg cap) [Concomitant]
  3. Aspirin (325 mg) [Concomitant]
  4. Atorvastatin Calcium (10 mg) [Concomitant]
  5. Calcium 600 (600mg) [Concomitant]
  6. COMBIVENT RESPIMAT [Concomitant]
     Active Substance: ALBUTEROL SULFATE\IPRATROPIUM BROMIDE
  7. Hydrochlorothiazide (25 mg) [Concomitant]
  8. Levothyroxine sodium (112 mcg) [Concomitant]
  9. Losartan Potassium (25 mg) [Concomitant]
  10. Magnesium oxide (250 mg) [Concomitant]
  11. Metformin (500 mg) [Concomitant]
  12. Nexium (20 mg) [Concomitant]
  13. Premarin (0.625 mg) [Concomitant]
  14. Propranolol HCL (20 mg) [Concomitant]
  15. Vitamin D3 ( 50 mcg) [Concomitant]

REACTIONS (4)
  - Injection site erythema [None]
  - Injection site pruritus [None]
  - Injection site swelling [None]
  - Injection site urticaria [None]

NARRATIVE: CASE EVENT DATE: 20211118
